FAERS Safety Report 14685999 (Version 1)
Quarter: 2018Q1

REPORT INFORMATION
  Report Type: Spontaneous
  Country: US (occurrence: US)
  Receive Date: 20180327
  Receipt Date: 20180327
  Transmission Date: 20180509
  Serious: Yes (Hospitalization, Other)
  Sender: FDA-Public Use
  Company Number: US-TEVA-2018-US-874810

PATIENT
  Age: 73 Year
  Sex: Female

DRUGS (1)
  1. BUDESONIDE. [Suspect]
     Active Substance: BUDESONIDE
     Indication: COLITIS MICROSCOPIC
     Route: 048

REACTIONS (8)
  - Mental status changes [Unknown]
  - Metabolic acidosis [Unknown]
  - Tachycardia [Unknown]
  - Clostridium difficile infection [Recovering/Resolving]
  - Leukocytosis [Unknown]
  - Blood creatinine increased [Unknown]
  - Condition aggravated [Recovering/Resolving]
  - Gastric ileus [Unknown]
